APPROVED DRUG PRODUCT: TEMSIROLIMUS
Active Ingredient: TEMSIROLIMUS
Strength: 25MG/ML (25MG/ML)
Dosage Form/Route: SOLUTION;INTRAVENOUS
Application: A203153 | Product #001 | TE Code: AP
Applicant: ACCORD HEALTHCARE INC
Approved: Jul 30, 2018 | RLD: No | RS: No | Type: RX